FAERS Safety Report 12586425 (Version 1)
Quarter: 2016Q3

REPORT INFORMATION
  Report Type: Spontaneous
  Country: US (occurrence: US)
  Receive Date: 20160725
  Receipt Date: 20160725
  Transmission Date: 20161109
  Serious: No
  Sender: FDA-Public Use
  Company Number: US-BAYER-2016-138242

PATIENT
  Sex: Female

DRUGS (1)
  1. MENSTRIDOL [Suspect]
     Active Substance: NAPROXEN SODIUM
     Dosage: UNK

REACTIONS (6)
  - Muscle spasms [None]
  - Product use issue [None]
  - Abdominal discomfort [None]
  - Drug ineffective [None]
  - Migraine [None]
  - Headache [None]
